FAERS Safety Report 20121104 (Version 1)
Quarter: 2021Q4

REPORT INFORMATION
  Report Type: Spontaneous
  Country: US (occurrence: US)
  Receive Date: 20211127
  Receipt Date: 20211127
  Transmission Date: 20220304
  Serious: No
  Sender: FDA-Public Use
  Company Number: US-SA-SAC20211123001403

PATIENT
  Age: 43 Year
  Sex: Male

DRUGS (2)
  1. DUPIXENT [Suspect]
     Active Substance: DUPILUMAB
     Dosage: 300MG/2ML, 300 MG, FREQUENCY: OTHER
     Route: 058
     Dates: start: 202108
  2. VISINE TRUE [Concomitant]

REACTIONS (1)
  - Dry eye [Unknown]
